FAERS Safety Report 8403008-4 (Version None)
Quarter: 2012Q2

REPORT INFORMATION
  Report Type: 
  Country: None (occurrence: None)
  Receive Date: 20120601
  Receipt Date: 20120528
  Transmission Date: 20120825
  Serious: Yes (Other)
  Sender: FDA-Public Use
  Company Number: CA-PFIZER INC-2012128189

PATIENT
  Age: 62 Year
  Sex: Female

DRUGS (11)
  1. PRISTIQ [Suspect]
     Dosage: 150 MG, UNK
     Dates: start: 20120401
  2. CLONIDINE [Concomitant]
     Dosage: 25 MG, UNK
  3. ZOPLICONE [Concomitant]
     Dosage: 7.5 MG, UNK
  4. ATENOLOL [Concomitant]
     Dosage: 50 MG, UNK
  5. VITAMIN D [Concomitant]
     Dosage: UNK IU, UNK
  6. PRISTIQ [Suspect]
     Dosage: 100 MG, UNK
     Dates: start: 20120101, end: 20120401
  7. SYNTHROID [Concomitant]
     Dosage: 0.25 MG, UNK
  8. CALCIUM WITH VITAMIN D [Concomitant]
     Dosage: 500MG-400IU, UNK
  9. ACETAMINOPHEN [Concomitant]
     Dosage: 500 MG, AS NEEDED
  10. PERINDOPRIL ERBUMINE [Concomitant]
     Dosage: 2 MG, UNK
  11. LOVAZA [Concomitant]
     Dosage: UNK

REACTIONS (6)
  - NEOPLASM MALIGNANT [None]
  - HOT FLUSH [None]
  - ANXIETY [None]
  - FATIGUE [None]
  - STRESS [None]
  - IMPAIRED WORK ABILITY [None]
